FAERS Safety Report 8855817 (Version 1)
Quarter: 2012Q4

REPORT INFORMATION
  Report Type: Spontaneous
  Country: US (occurrence: None)
  Receive Date: 20121022
  Receipt Date: 20121022
  Transmission Date: 20130627
  Serious: Yes (Disabling, Other)
  Sender: FDA-Public Use
  Company Number: None

PATIENT
  Age: 30 Year
  Sex: Female
  Weight: 68.04 kg

DRUGS (1)
  1. AVELOX [Suspect]
     Route: 048
     Dates: start: 20120424, end: 20120430

REACTIONS (2)
  - Tendonitis [None]
  - Tendon rupture [None]
